FAERS Safety Report 18319866 (Version 1)
Quarter: 2020Q3

REPORT INFORMATION
  Report Type: Report from Study
  Country: None (occurrence: US)
  Receive Date: 20200928
  Receipt Date: 20200928
  Transmission Date: 20201103
  Serious: Yes (Other)
  Sender: FDA-Public Use
  Company Number: US-ABBVIE-20K-163-3582562-00

PATIENT
  Sex: Male

DRUGS (1)
  1. MAVYRET [Suspect]
     Active Substance: GLECAPREVIR\PIBRENTASVIR
     Indication: CHRONIC HEPATITIS C
     Dosage: TAKE 3 TABLET BY MOUTH ONCE DAILY WITH FOOD
     Route: 048
     Dates: start: 202007, end: 20200920

REACTIONS (4)
  - Insomnia [Recovered/Resolved]
  - Asthenia [Recovered/Resolved]
  - Abdominal pain upper [Recovered/Resolved]
  - Chemotherapy [Recovered/Resolved]

NARRATIVE: CASE EVENT DATE: 2020
